FAERS Safety Report 6432638-4 (Version None)
Quarter: 2009Q4

REPORT INFORMATION
  Report Type: 
  Country: None (occurrence: None)
  Receive Date: 20091109
  Receipt Date: 20091028
  Transmission Date: 20100525
  Serious: Yes (Hospitalization)
  Sender: FDA-Public Use
  Company Number: TR-ELI_LILLY_AND_COMPANY-TR200910007886

PATIENT

DRUGS (3)
  1. HUMULIN N [Suspect]
     Dosage: 22 U, DAILY (1/D)
     Route: 064
     Dates: start: 20090301, end: 20091020
  2. ELEVIT [Concomitant]
     Dosage: UNK UNK, EACH MORNING
     Route: 064
  3. FOLIC ACID [Concomitant]
     Dosage: UNK, 2/D

REACTIONS (2)
  - DRUG EXPOSURE DURING PREGNANCY [None]
  - JAUNDICE [None]
